FAERS Safety Report 19123898 (Version 2)
Quarter: 2021Q2

REPORT INFORMATION
  Report Type: Report from Study
  Country: None (occurrence: RO)
  Receive Date: 20210413
  Receipt Date: 20210602
  Transmission Date: 20210717
  Serious: Yes (Death, Hospitalization)
  Sender: FDA-Public Use
  Company Number: RO-ABBVIE-21K-135-3854026-00

PATIENT
  Age: 73 Year
  Sex: Male

DRUGS (6)
  1. VITAMIN B12 [Concomitant]
     Active Substance: CYANOCOBALAMIN
     Indication: ANAEMIA
     Route: 030
  2. TONOTIL [Concomitant]
     Indication: ANAEMIA
     Dosage: IN THE EVENING
     Route: 048
  3. DUODOPA [Suspect]
     Active Substance: CARBIDOPA\LEVODOPA
  4. DUODOPA [Suspect]
     Active Substance: CARBIDOPA\LEVODOPA
     Indication: PARKINSON^S DISEASE
     Dosage: DM 10.00, DC 4.40, ED 2.40, NRED 0, DMN 0.00, DCN 0.00, EDN 0.00, NREDN 0,
     Route: 050
     Dates: start: 20150430, end: 20210530
  5. REQUIP [Concomitant]
     Active Substance: ROPINIROLE HYDROCHLORIDE
     Indication: PARKINSON^S DISEASE
     Route: 048
  6. ISICOM [Concomitant]
     Active Substance: CARBIDOPA\LEVODOPA
     Indication: PARKINSON^S DISEASE
     Dosage: IN THE EVENING
     Route: 048

REACTIONS (6)
  - Pyrexia [Recovering/Resolving]
  - Cardio-respiratory arrest [Fatal]
  - Renal failure [Not Recovered/Not Resolved]
  - Hypotension [Recovering/Resolving]
  - Cardiac failure [Not Recovered/Not Resolved]
  - Hepatic failure [Not Recovered/Not Resolved]

NARRATIVE: CASE EVENT DATE: 20210403
